FAERS Safety Report 8058040-X (Version None)
Quarter: 2012Q1

REPORT INFORMATION
  Report Type: 
  Country: None (occurrence: None)
  Receive Date: 20120113
  Receipt Date: 20111227
  Transmission Date: 20120608
  Serious: Yes (Hospitalization)
  Sender: FDA-Public Use
  Company Number: DIAZ20110014

PATIENT
  Age: 36 Year
  Sex: Female

DRUGS (4)
  1. OLANZAPINE [Suspect]
     Indication: MANIA
     Dosage: 10 MG ; 20 MG, D
  2. DIVALPROEX EXTENDED-RELEASE [Suspect]
     Indication: MANIA
     Dosage: 1000 MG, D ; 1500 MG, D
  3. DIVALPROEX EXTENDED-RELEASE [Suspect]
     Indication: MANIA
     Dosage: 1000 MG, D ; 1500 MG, D
  4. DIAZEPAM [Suspect]
     Indication: AGITATION
     Dosage: 30 MG, D

REACTIONS (6)
  - DRUG INTERACTION [None]
  - SOMNOLENCE [None]
  - ENCEPHALOPATHY [None]
  - COMA [None]
  - NEUROTOXICITY [None]
  - OVERDOSE [None]
